FAERS Safety Report 10158106 (Version 2)
Quarter: 2014Q2

REPORT INFORMATION
  Report Type: Report from Study
  Country: CA (occurrence: CA)
  Receive Date: 20140507
  Receipt Date: 20140605
  Transmission Date: 20141212
  Serious: Yes (Hospitalization)
  Sender: FDA-Public Use
  Company Number: CA-ABBVIE-14P-028-1231513-00

PATIENT
  Age: 52 Year
  Sex: Female
  Weight: 46.76 kg

DRUGS (7)
  1. HUMIRA [Suspect]
     Indication: CROHN^S DISEASE
     Route: 058
     Dates: start: 20101004
  2. HUMIRA [Suspect]
     Dosage: LATEST DOSE: 28-APR-2014; WEEKLY
     Route: 058
     Dates: start: 20140321
  3. METHOTREXATE [Concomitant]
     Indication: CROHN^S DISEASE
     Route: 048
  4. CALCIUM [Concomitant]
     Indication: MINERAL SUPPLEMENTATION
     Route: 048
  5. EURO FOLIC [Concomitant]
     Indication: CROHN^S DISEASE
     Route: 048
  6. VITAMIN D [Concomitant]
     Indication: VITAMIN SUPPLEMENTATION
     Route: 048
  7. PREDNISONE [Concomitant]
     Indication: CROHN^S DISEASE
     Route: 048

REACTIONS (6)
  - Gastrointestinal inflammation [Unknown]
  - Dehydration [Recovered/Resolved]
  - Asthenia [Recovered/Resolved]
  - Hypophagia [Recovered/Resolved]
  - Vomiting [Recovered/Resolved]
  - Crohn^s disease [Recovering/Resolving]
